FAERS Safety Report 22636864 (Version 1)
Quarter: 2023Q2

REPORT INFORMATION
  Report Type: Spontaneous
  Country: GB (occurrence: GB)
  Receive Date: 20230626
  Receipt Date: 20230626
  Transmission Date: 20230722
  Serious: Yes (Hospitalization)
  Sender: FDA-Public Use
  Company Number: GB-Accord-363314

PATIENT
  Age: 68 Year
  Sex: Female
  Weight: 55.2 kg

DRUGS (8)
  1. CARBOPLATIN [Suspect]
     Active Substance: CARBOPLATIN
     Indication: Anal cancer
     Dosage: 300 MILLIGRAM Q4W
     Route: 042
     Dates: start: 20220915, end: 20230105
  2. PACLITAXEL [Suspect]
     Active Substance: PACLITAXEL
     Indication: Anal cancer
     Dosage: 108 MILLIGRAM, WEEKLY (FOR 3 WEEKS)
     Route: 042
     Dates: start: 20220915, end: 20230223
  3. FENTANYL [Concomitant]
     Active Substance: FENTANYL
  4. OXYCODONE [Concomitant]
     Active Substance: OXYCODONE
  5. HYDROCORTISONE [Concomitant]
     Active Substance: HYDROCORTISONE
  6. CYCLIZINE [Concomitant]
     Active Substance: CYCLIZINE
  7. DOCUSATE SODIUM [Concomitant]
     Active Substance: DOCUSATE SODIUM
  8. LEVOTHYROXINE [Concomitant]
     Active Substance: LEVOTHYROXINE

REACTIONS (3)
  - Dizziness [Not Recovered/Not Resolved]
  - Circulatory collapse [Unknown]
  - Embolism venous [Unknown]

NARRATIVE: CASE EVENT DATE: 20230516
